FAERS Safety Report 5256431-3 (Version None)
Quarter: 2007Q1

REPORT INFORMATION
  Report Type: 
  Country: None (occurrence: None)
  Receive Date: 20070306
  Receipt Date: 20070220
  Transmission Date: 20070707
  Serious: Yes (Other)
  Sender: FDA-Public Use
  Company Number: US-AMGEN-STX211976

PATIENT
  Sex: Female

DRUGS (6)
  1. ENBREL [Suspect]
     Indication: PSORIATIC ARTHROPATHY
     Route: 065
     Dates: start: 20060223, end: 20060701
  2. ENBREL [Suspect]
     Indication: PSORIASIS
  3. MOBIC [Concomitant]
  4. PREMARIN [Concomitant]
  5. ZOCOR [Concomitant]
  6. UNIVASC [Concomitant]

REACTIONS (5)
  - CATARACT OPERATION [None]
  - PSORIASIS [None]
  - PSORIATIC ARTHROPATHY [None]
  - RETINAL DETACHMENT [None]
  - RETINAL HAEMORRHAGE [None]
